FAERS Safety Report 21932192 (Version 1)
Quarter: 2023Q1

REPORT INFORMATION
  Report Type: Report from Study
  Country: NL (occurrence: NL)
  Receive Date: 20230131
  Receipt Date: 20230131
  Transmission Date: 20230417
  Serious: Yes (Hospitalization)
  Sender: FDA-Public Use
  Company Number: NL-002147023-NVSC2023NL016419

PATIENT
  Age: 59 Year
  Sex: Male

DRUGS (1)
  1. KESIMPTA [Suspect]
     Active Substance: OFATUMUMAB
     Indication: Relapsing multiple sclerosis
     Dosage: 20 ML = 0.04 MG, Q4W
     Route: 058
     Dates: start: 20220607

REACTIONS (8)
  - COVID-19 [Recovering/Resolving]
  - Nasopharyngitis [Recovering/Resolving]
  - Decreased immune responsiveness [Recovering/Resolving]
  - Multiple sclerosis relapse [Recovering/Resolving]
  - Diplegia [Recovering/Resolving]
  - Paresis [Recovering/Resolving]
  - Influenza like illness [Recovered/Resolved]
  - Flushing [Recovered/Resolved]

NARRATIVE: CASE EVENT DATE: 20230101
